FAERS Safety Report 18734343 (Version 2)
Quarter: 2021Q1

REPORT INFORMATION
  Report Type: Report from Study
  Country: US (occurrence: US)
  Receive Date: 20210113
  Receipt Date: 20210126
  Transmission Date: 20210419
  Serious: Yes (Other)
  Sender: FDA-Public Use
  Company Number: US-EISAI MEDICAL RESEARCH-EC-2021-086388

PATIENT
  Age: 69 Year
  Sex: Female

DRUGS (5)
  1. LENVIMA [Suspect]
     Active Substance: LENVATINIB
     Indication: BREAST CANCER FEMALE
     Route: 048
     Dates: start: 20201020, end: 20201022
  2. LENVIMA [Suspect]
     Active Substance: LENVATINIB
     Indication: METASTASES TO BONE
     Route: 048
     Dates: start: 20201223, end: 20210105
  3. LENVIMA [Suspect]
     Active Substance: LENVATINIB
     Indication: THYROID CANCER
     Route: 048
     Dates: start: 20201126, end: 20201216
  4. LENVIMA [Suspect]
     Active Substance: LENVATINIB
     Indication: METASTASES TO LYMPH NODES
     Route: 048
     Dates: start: 20201028, end: 20201125
  5. LENVIMA [Suspect]
     Active Substance: LENVATINIB
     Route: 048
     Dates: start: 20210113

REACTIONS (1)
  - Electrocardiogram QT prolonged [Unknown]

NARRATIVE: CASE EVENT DATE: 20210105
